FAERS Safety Report 8387921-2 (Version None)
Quarter: 2012Q2

REPORT INFORMATION
  Report Type: 
  Country: None (occurrence: None)
  Receive Date: 20120525
  Receipt Date: 20120517
  Transmission Date: 20120825
  Serious: Yes (Hospitalization, Disabling, Other)
  Sender: FDA-Public Use
  Company Number: US-MERCK-1201USA02545

PATIENT
  Age: 56 Year
  Sex: Female
  Weight: 62 kg

DRUGS (6)
  1. FOSAMAX [Suspect]
     Indication: OSTEOPOROSIS
     Route: 048
     Dates: start: 20010501, end: 20080601
  2. FLONASE [Concomitant]
     Route: 055
     Dates: start: 20020601
  3. VITAMIN D (UNSPECIFIED) [Concomitant]
     Route: 048
     Dates: start: 19990101
  4. FOSAMAX [Suspect]
     Route: 048
     Dates: start: 19991101, end: 20010401
  5. TETRACYCLINE [Concomitant]
     Route: 065
     Dates: start: 19800101
  6. ALENDRONATE SODIUM [Suspect]
     Indication: OSTEOPOROSIS
     Route: 048
     Dates: start: 20080716, end: 20100201

REACTIONS (14)
  - OSTEOARTHRITIS [None]
  - LOW TURNOVER OSTEOPATHY [None]
  - PELVIC MASS [None]
  - DIVERTICULUM INTESTINAL [None]
  - ECZEMA [None]
  - FALL [None]
  - INAPPROPRIATE SCHEDULE OF DRUG ADMINISTRATION [None]
  - OTITIS MEDIA [None]
  - DEAFNESS [None]
  - UTERINE DISORDER [None]
  - BLOOD CALCIUM DECREASED [None]
  - FRACTURE DELAYED UNION [None]
  - SINUSITIS [None]
  - FEMUR FRACTURE [None]
